FAERS Safety Report 5953494-4 (Version None)
Quarter: 2008Q4

REPORT INFORMATION
  Report Type: 
  Country: None (occurrence: None)
  Receive Date: 20081114
  Receipt Date: 20081106
  Transmission Date: 20090506
  Serious: Yes (Other)
  Sender: FDA-Public Use
  Company Number: BR-ROCHE-595773

PATIENT
  Sex: Female

DRUGS (1)
  1. BONIVA [Suspect]
     Indication: OSTEOPENIA
     Route: 048
     Dates: start: 20060101, end: 20081001

REACTIONS (1)
  - OSTEONECROSIS [None]
